FAERS Safety Report 17197353 (Version 1)
Quarter: 2019Q4

REPORT INFORMATION
  Report Type: Spontaneous
  Country: US (occurrence: US)
  Receive Date: 20191224
  Receipt Date: 20191224
  Transmission Date: 20200122
  Serious: Yes (Death, Hospitalization)
  Sender: FDA-Public Use
  Company Number: US-TEVA-2019-US-1157563

PATIENT
  Age: 49 Year
  Sex: Male

DRUGS (1)
  1. VERAPAMIL [Suspect]
     Active Substance: VERAPAMIL HYDROCHLORIDE
     Dosage: AFTER INGESTING 50 TABLETS OF VERAPAMIL 180MG
     Route: 048

REACTIONS (8)
  - Intentional overdose [Fatal]
  - Toxicity to various agents [Fatal]
  - Completed suicide [Fatal]
  - Bradycardia [Unknown]
  - Vomiting [Unknown]
  - Cardiac arrest [Fatal]
  - Hypotension [Unknown]
  - Shock [Unknown]
